FAERS Safety Report 4370205-7 (Version None)
Quarter: 2004Q2

REPORT INFORMATION
  Report Type: 
  Country: None (occurrence: None)
  Receive Date: 20040603
  Receipt Date: 20040414
  Transmission Date: 20050107
  Serious: Yes (Hospitalization)
  Sender: FDA-Public Use
  Company Number: US-BRISTOL-MYERS SQUIBB COMPANY-12560140

PATIENT
  Age: 27 Year
  Sex: Male
  Weight: 59 kg

DRUGS (2)
  1. ABILIFY [Suspect]
     Indication: BIPOLAR DISORDER
     Route: 048
     Dates: start: 20040331
  2. NEURONTIN [Concomitant]

REACTIONS (3)
  - ABDOMINAL PAIN UPPER [None]
  - CONVULSION [None]
  - SYNCOPE [None]
